FAERS Safety Report 22274154 (Version 1)
Quarter: 2023Q2

REPORT INFORMATION
  Report Type: Spontaneous
  Country: US (occurrence: None)
  Receive Date: 20230501
  Receipt Date: 20230501
  Transmission Date: 20230722
  Serious: Yes (Hospitalization)
  Sender: FDA-Public Use
  Company Number: None

PATIENT
  Sex: Male

DRUGS (1)
  1. HUMIRA [Suspect]
     Active Substance: ADALIMUMAB
     Indication: Hidradenitis
     Dosage: FREQUENCY : DAILY;?
     Route: 058
     Dates: start: 201909

REACTIONS (4)
  - Sepsis [None]
  - Cellulitis [None]
  - Urinary tract infection [None]
  - Therapy interrupted [None]
